FAERS Safety Report 11269325 (Version 3)
Quarter: 2015Q3

REPORT INFORMATION
  Report Type: Report from Study
  Country: US (occurrence: US)
  Receive Date: 20150714
  Receipt Date: 20150807
  Transmission Date: 20151125
  Serious: No
  Sender: FDA-Public Use
  Company Number: PHEH2015US009184

PATIENT
  Age: 61 Year
  Sex: Female

DRUGS (1)
  1. COSENTYX [Suspect]
     Active Substance: SECUKINUMAB
     Indication: PSORIASIS
     Dosage: 300 MG, QMO (ONCE A MONTH)
     Route: 058
     Dates: start: 20150415

REACTIONS (10)
  - Influenza like illness [Unknown]
  - Fatigue [Unknown]
  - Rash generalised [Unknown]
  - Inappropriate schedule of drug administration [Unknown]
  - Skin reaction [Unknown]
  - Rhinorrhoea [Unknown]
  - Psoriasis [Unknown]
  - Pain [Unknown]
  - Pruritus [Unknown]
  - Urticaria [Unknown]

NARRATIVE: CASE EVENT DATE: 20150612
